FAERS Safety Report 8742914 (Version 2)
Quarter: 2012Q4

REPORT INFORMATION
  Report Type: Spontaneous
  Country: JP (occurrence: None)
  Receive Date: 20120807
  Receipt Date: 20120820
  Transmission Date: 20130627
  Serious: Yes (Other)
  Sender: FDA-Public Use
  Company Number: DKLU1083633

PATIENT
  Sex: Female

DRUGS (11)
  1. ONFI [Suspect]
     Indication: INFANTILE SPASMS
  2. VALPROIC ACID [Suspect]
     Indication: INFANTILE SPASMS
  3. TOPIRAMATE [Suspect]
     Indication: INFANTILE SPASMS
  4. CLONAZEPAM [Suspect]
     Indication: INFANTILE SPASMS
  5. PHENYTOIN [Suspect]
     Indication: INFANTILE SPASMS
  6. LAMOTRIGINE [Suspect]
     Indication: INFANTILE SPASMS
  7. DIAZEPAM [Suspect]
     Indication: INFANTILE SPASMS
  8. PHENOBARBITAL [Suspect]
     Indication: INFANTILE SPASMS
  9. ZONISAMIDE [Concomitant]
  10. ETHOSYXIMIDE (ETHOSUXIMIDE) [Concomitant]
  11. CORTICOTROPIN (CORTRICOTROPIN) [Concomitant]

REACTIONS (6)
  - CONVULSION [None]
  - DRUG INEFFECTIVE [None]
  - DROP ATTACKS [None]
  - FALL [None]
  - HEAD INJURY [None]
  - DEVELOPMENTAL DELAY [None]
